FAERS Safety Report 6191090-7 (Version None)
Quarter: 2009Q2

REPORT INFORMATION
  Report Type: 
  Country: None (occurrence: None)
  Receive Date: 20090513
  Receipt Date: 20090513
  Transmission Date: 20091009
  Serious: Yes (Hospitalization, Other)
  Sender: FDA-Public Use
  Company Number: None

PATIENT
  Age: 16 Year
  Sex: Female
  Weight: 50.8029 kg

DRUGS (2)
  1. LAMOTRIGINE [Suspect]
     Indication: CONVULSION
     Dosage: 150 MG TID ORAL
     Route: 048
  2. LAMOTRIGINE [Suspect]
     Dosage: 200 MG TID ORAL
     Route: 048
     Dates: start: 20090408, end: 20090415

REACTIONS (9)
  - ACCIDENTAL OVERDOSE [None]
  - ATAXIA [None]
  - DIPLOPIA [None]
  - DIZZINESS [None]
  - DRUG TOXICITY [None]
  - MEDICATION ERROR [None]
  - OVERDOSE [None]
  - RASH [None]
  - TABLET ISSUE [None]
